FAERS Safety Report 23668483 (Version 1)
Quarter: 2024Q1

REPORT INFORMATION
  Report Type: Spontaneous
  Country: FR (occurrence: FR)
  Receive Date: 20240325
  Receipt Date: 20240325
  Transmission Date: 20240409
  Serious: Yes (Other)
  Sender: FDA-Public Use
  Company Number: None

PATIENT
  Age: 36 Year
  Sex: Female

DRUGS (2)
  1. TOCILIZUMAB [Suspect]
     Active Substance: TOCILIZUMAB
     Indication: Polyarthritis
     Route: 058
     Dates: start: 20150201, end: 20181201
  2. METHOTREXATE [Suspect]
     Active Substance: METHOTREXATE
     Indication: Polyarthritis
     Route: 065
     Dates: start: 20050101, end: 20231101

REACTIONS (1)
  - Hepatocellular injury [Recovering/Resolving]

NARRATIVE: CASE EVENT DATE: 20151201
